FAERS Safety Report 15516306 (Version 1)
Quarter: 2018Q4

REPORT INFORMATION
  Report Type: Spontaneous
  Country: NL (occurrence: NL)
  Receive Date: 20181017
  Receipt Date: 20181017
  Transmission Date: 20190205
  Serious: Yes (Hospitalization, Other)
  Sender: FDA-Public Use
  Company Number: NL-MYLANLABS-2018M1074632

PATIENT
  Age: 54 Year
  Sex: Male

DRUGS (4)
  1. NILOTINIB [Suspect]
     Active Substance: NILOTINIB
     Indication: CHRONIC MYELOID LEUKAEMIA
     Route: 065
     Dates: start: 201302
  2. BOSUTINIB [Suspect]
     Active Substance: BOSUTINIB
     Indication: CHRONIC MYELOID LEUKAEMIA
     Dosage: DOSE WAS LATER REDUCED TO 300MG ONCE A DAY
     Route: 065
  3. IMATINIB. [Suspect]
     Active Substance: IMATINIB MESYLATE
     Indication: CHRONIC MYELOID LEUKAEMIA
     Route: 065
  4. DASATINIB. [Suspect]
     Active Substance: DASATINIB
     Indication: CHRONIC MYELOID LEUKAEMIA
     Dosage: DOSE WAS LATER REDUCED TO 40MG ONCE A DAY
     Route: 065

REACTIONS (7)
  - Pleural effusion [Unknown]
  - Arteriospasm coronary [Unknown]
  - Myocardial infarction [Unknown]
  - Drug ineffective [Unknown]
  - Ventricular fibrillation [Unknown]
  - Electrocardiogram ST segment elevation [Unknown]
  - Fall [Unknown]

NARRATIVE: CASE EVENT DATE: 201007
